FAERS Safety Report 9552425 (Version 1)
Quarter: 2013Q3

REPORT INFORMATION
  Report Type: Spontaneous
  Country: US (occurrence: US)
  Receive Date: 20130925
  Receipt Date: 20130925
  Transmission Date: 20140515
  Serious: No
  Sender: FDA-Public Use
  Company Number: US-PFIZER INC-2013274665

PATIENT
  Age: 61 Year
  Sex: Female
  Weight: 90.7 kg

DRUGS (4)
  1. CELEBREX [Suspect]
     Indication: ARTHRALGIA
     Dosage: 200 MG, 1X/DAY
     Route: 048
     Dates: start: 2005
  2. SPIRIVA [Concomitant]
     Dosage: UNK
  3. SYNTHROID [Concomitant]
     Dosage: UNK
  4. HYDROCHLOROTHIAZIDE [Concomitant]
     Indication: HYPERTENSION
     Dosage: UNK

REACTIONS (1)
  - Drug ineffective [Unknown]
